FAERS Safety Report 14393848 (Version 1)
Quarter: 2018Q1

REPORT INFORMATION
  Report Type: Spontaneous
  Country: CN (occurrence: CN)
  Receive Date: 20180116
  Receipt Date: 20180116
  Transmission Date: 20180509
  Serious: Yes (Other)
  Sender: FDA-Public Use
  Company Number: CN-ARALEZ PHARMACEUTICALS R+D INC.-2018-ARA-000063

PATIENT
  Sex: Male

DRUGS (4)
  1. METOPROLOL SUCCINATE. [Suspect]
     Active Substance: METOPROLOL SUCCINATE
     Indication: CORONARY ARTERY OCCLUSION
     Dosage: 1 DF, QD
     Route: 048
     Dates: start: 20170807, end: 20171102
  2. BRILINTA [Suspect]
     Active Substance: TICAGRELOR
     Indication: CORONARY ARTERY OCCLUSION
     Dosage: 1 DF, BID
     Route: 048
     Dates: start: 20170807, end: 20171102
  3. LIPITOR [Suspect]
     Active Substance: ATORVASTATIN CALCIUM
     Indication: CORONARY ARTERY OCCLUSION
     Dosage: 1 DF, QD
     Route: 048
     Dates: start: 20170807, end: 20171102
  4. NEXIUM [Suspect]
     Active Substance: ESOMEPRAZOLE MAGNESIUM
     Indication: CORONARY ARTERY OCCLUSION
     Dosage: 1 DF, BID
     Route: 048
     Dates: start: 20170807, end: 20171102

REACTIONS (1)
  - Abdominal pain [Recovered/Resolved]
